FAERS Safety Report 6099838-7 (Version None)
Quarter: 2009Q1

REPORT INFORMATION
  Report Type: 
  Country: None (occurrence: None)
  Receive Date: 20090303
  Receipt Date: 20090223
  Transmission Date: 20090719
  Serious: Yes (Hospitalization, Other)
  Sender: FDA-Public Use
  Company Number: PHHY2009DE07045

PATIENT
  Sex: Female

DRUGS (3)
  1. ZOMETA [Suspect]
     Indication: PLASMACYTOMA
     Dosage: 4 MG EVERY 3 TO 4 WEEKS
     Route: 042
     Dates: start: 20030313, end: 20080115
  2. AREDIA [Suspect]
     Indication: PLASMACYTOMA
     Dosage: TOTAL OF 66 INFUSIONS
     Route: 042
     Dates: start: 19980525, end: 20030228
  3. VELCADE [Concomitant]
     Indication: PLASMACYTOMA
     Dosage: UNK
     Dates: start: 19980101

REACTIONS (6)
  - GENERAL ANAESTHESIA [None]
  - IMPAIRED HEALING [None]
  - LOOSE TOOTH [None]
  - OSTEONECROSIS [None]
  - SURGERY [None]
  - TOOTH EXTRACTION [None]
